FAERS Safety Report 7789923-3 (Version None)
Quarter: 2011Q3

REPORT INFORMATION
  Report Type: 
  Country: None (occurrence: None)
  Receive Date: 20110930
  Receipt Date: 20110106
  Transmission Date: 20111222
  Serious: No
  Sender: FDA-Public Use
  Company Number: US-ASTRAZENECA-2009UW09368

PATIENT
  Age: 73 Year
  Sex: Female
  Weight: 79.8 kg

DRUGS (9)
  1. PAXIL [Concomitant]
     Indication: ANXIETY
  2. CALCIUM WITH VITAMIN D [Concomitant]
  3. CELEXA [Concomitant]
  4. ARIMIDEX [Suspect]
     Indication: BREAST CANCER
     Route: 048
     Dates: start: 20080201
  5. CENTRUM SILVER [Concomitant]
  6. ADVAIR DISKUS 100/50 [Concomitant]
  7. ZOCOR [Concomitant]
     Indication: BLOOD CHOLESTEROL ABNORMAL
  8. LOVAZA [Concomitant]
  9. PAXIL [Concomitant]
     Indication: DEPRESSION

REACTIONS (13)
  - DYSPNOEA [None]
  - ANXIETY [None]
  - DYSPHONIA [None]
  - ASTHENIA [None]
  - PAIN IN EXTREMITY [None]
  - TOOTH ABSCESS [None]
  - INCREASED UPPER AIRWAY SECRETION [None]
  - DEPRESSION [None]
  - FATIGUE [None]
  - NASOPHARYNGITIS [None]
  - ARTHRALGIA [None]
  - COUGH [None]
  - GASTROOESOPHAGEAL REFLUX DISEASE [None]
